FAERS Safety Report 7504468-3 (Version None)
Quarter: 2011Q2

REPORT INFORMATION
  Report Type: 
  Country: None (occurrence: None)
  Receive Date: 20110525
  Receipt Date: 20091122
  Transmission Date: 20111010
  Serious: Yes (Other)
  Sender: FDA-Public Use
  Company Number: US-BAYER-200940299NA

PATIENT
  Sex: Male
  Weight: 100 kg

DRUGS (11)
  1. TRASYLOL [Suspect]
     Indication: CORONARY ARTERY BYPASS
     Dosage: INITIAL TEST DOSE OF 1 ML
     Route: 042
     Dates: start: 20030611, end: 20030611
  2. LEVOTHYROXINE SODIUM [Concomitant]
     Dosage: 125MG
     Route: 048
  3. LASIX [Concomitant]
     Dosage: 40MG
     Route: 048
  4. HEPARIN [Concomitant]
     Dosage: 8000UNITS
     Route: 042
     Dates: start: 20030609, end: 20030609
  5. NITROGLYCERIN [Concomitant]
     Dosage: 200MICROGRAMS
     Route: 042
     Dates: start: 20030609, end: 20030609
  6. PROTAMINE SULFATE [Concomitant]
     Dosage: 525MG
     Route: 042
     Dates: start: 20030611, end: 20030611
  7. TRASYLOL [Suspect]
     Dosage: LOADING DOSE OF 200ML  FOLLOWED BY 50ML/HR INFUSION
     Route: 042
     Dates: start: 20030611, end: 20030611
  8. HEPARIN [Concomitant]
     Dosage: 10000UNITS
     Route: 042
     Dates: start: 20030611, end: 20030611
  9. NITROGLYCERIN [Concomitant]
     Dosage: 10000UNITS
     Route: 042
     Dates: start: 20030611, end: 20030611
  10. VERAPAMIL [Concomitant]
     Dosage: 2ML
     Route: 042
     Dates: start: 20030611, end: 20030611
  11. LIPITOR [Concomitant]
     Dosage: 10MG
     Route: 048

REACTIONS (12)
  - PSYCHIATRIC SYMPTOM [None]
  - RENAL INJURY [None]
  - ANXIETY [None]
  - RENAL FAILURE [None]
  - UNEVALUABLE EVENT [None]
  - PAIN [None]
  - ANHEDONIA [None]
  - EMOTIONAL DISTRESS [None]
  - INJURY [None]
  - FEAR [None]
  - STRESS [None]
  - RENAL IMPAIRMENT [None]
